FAERS Safety Report 10214177 (Version 1)
Quarter: 2014Q2

REPORT INFORMATION
  Report Type: Spontaneous
  Country: US (occurrence: US)
  Receive Date: 20140603
  Receipt Date: 20140603
  Transmission Date: 20141212
  Serious: No
  Sender: FDA-Public Use
  Company Number: US-PFIZER INC-2014147279

PATIENT
  Age: 58 Year
  Sex: Male
  Weight: 66.21 kg

DRUGS (7)
  1. LIPITOR [Suspect]
     Indication: BLOOD CHOLESTEROL INCREASED
     Dosage: 80 MG, DAILY
     Dates: start: 20140208
  2. LIPITOR [Suspect]
     Indication: HYPERLIPIDAEMIA
  3. COUMADIN [Concomitant]
     Dosage: UNK
  4. VASOTEC [Concomitant]
     Dosage: UNK
  5. COREG [Concomitant]
     Dosage: UNK
  6. INSPRA [Concomitant]
     Dosage: UNK
  7. PLAVIX [Concomitant]
     Dosage: UNK

REACTIONS (2)
  - Weight decreased [Unknown]
  - Muscle atrophy [Unknown]
